FAERS Safety Report 11140695 (Version 8)
Quarter: 2016Q4

REPORT INFORMATION
  Report Type: Spontaneous
  Country: JP (occurrence: JP)
  Receive Date: 20150527
  Receipt Date: 20161216
  Transmission Date: 20170206
  Serious: Yes (Death, Hospitalization)
  Sender: FDA-Public Use
  Company Number: PHJP2015JP006982

PATIENT
  Age: 40 Year
  Sex: Female

DRUGS (2)
  1. AFINITOR [Suspect]
     Active Substance: EVEROLIMUS
     Indication: KIDNEY ANGIOMYOLIPOMA
     Dosage: UNK
     Route: 048
  2. AFINITOR [Suspect]
     Active Substance: EVEROLIMUS
     Indication: RENAL HAEMANGIOMA
     Dosage: UNK (HALF DOSE)
     Route: 065

REACTIONS (5)
  - Altered state of consciousness [Fatal]
  - White matter lesion [Fatal]
  - Headache [Fatal]
  - Leukoencephalopathy [Fatal]
  - Subarachnoid haemorrhage [Fatal]
